FAERS Safety Report 15450444 (Version 1)
Quarter: 2018Q4

REPORT INFORMATION
  Report Type: Spontaneous
  Country: IR (occurrence: IR)
  Receive Date: 20181001
  Receipt Date: 20181001
  Transmission Date: 20190204
  Serious: Yes (Other)
  Sender: FDA-Public Use
  Company Number: IR-AXELLIA-001976

PATIENT
  Age: 19 Year
  Sex: Female

DRUGS (1)
  1. VANCOMYCIN [Suspect]
     Active Substance: VANCOMYCIN
     Indication: PRODUCT USED FOR UNKNOWN INDICATION

REACTIONS (1)
  - Drug hypersensitivity [Unknown]
